FAERS Safety Report 12270893 (Version 1)
Quarter: 2016Q2

REPORT INFORMATION
  Report Type: Spontaneous
  Country: CN (occurrence: CN)
  Receive Date: 20160415
  Receipt Date: 20160415
  Transmission Date: 20160815
  Serious: Yes (Other)
  Sender: FDA-Public Use
  Company Number: CN-VIIV HEALTHCARE LIMITED-CN2016GSK049800

PATIENT
  Age: 59 Year
  Sex: Male
  Weight: 52 kg

DRUGS (1)
  1. HEPTODIN [Suspect]
     Active Substance: LAMIVUDINE
     Indication: HEPATITIS
     Dosage: 0.2 G, BID
     Route: 048
     Dates: start: 20151103, end: 20151103

REACTIONS (5)
  - Nausea [Recovering/Resolving]
  - Dizziness [Recovering/Resolving]
  - Dyspnoea [Recovering/Resolving]
  - Abdominal pain [Recovering/Resolving]
  - Diarrhoea [Recovering/Resolving]

NARRATIVE: CASE EVENT DATE: 20151103
